FAERS Safety Report 4796627-8 (Version None)
Quarter: 2005Q4

REPORT INFORMATION
  Report Type: 
  Country: None (occurrence: None)
  Receive Date: 20051007
  Receipt Date: 20050928
  Transmission Date: 20060501
  Serious: No
  Sender: FDA-Public Use
  Company Number: 05H-114-0302791-00

PATIENT

DRUGS (3)
  1. PENTOTHAL [Suspect]
     Indication: STATUS EPILEPTICUS
     Dosage: SEE IMAGE
  2. FLUIDS [Concomitant]
  3. INOTROPES [Concomitant]

REACTIONS (1)
  - PLEURAL EFFUSION [None]
